FAERS Safety Report 6604141-X (Version None)
Quarter: 2010Q1

REPORT INFORMATION
  Report Type: 
  Country: None (occurrence: None)
  Receive Date: 20100226
  Receipt Date: 20090608
  Transmission Date: 20100710
  Serious: Yes (Hospitalization)
  Sender: FDA-Public Use
  Company Number: A0789400A

PATIENT
  Age: 62 Year
  Sex: Female

DRUGS (4)
  1. LAMICTAL CD [Suspect]
     Dosage: 200MG TWICE PER DAY
     Route: 048
     Dates: start: 20040101
  2. LAMOTRIGINE [Suspect]
     Dosage: 200MG TWICE PER DAY
     Route: 048
     Dates: start: 20090502, end: 20090504
  3. SINEMET [Concomitant]
  4. KEPPRA [Concomitant]

REACTIONS (2)
  - CONVULSION [None]
  - RASH [None]
